FAERS Safety Report 19396904 (Version 2)
Quarter: 2021Q4

REPORT INFORMATION
  Report Type: Spontaneous
  Country: JP (occurrence: JP)
  Receive Date: 20210610
  Receipt Date: 20211011
  Transmission Date: 20220303
  Serious: Yes (Hospitalization, Other)
  Sender: FDA-Public Use
  Company Number: JP-SA-2021SA187795

PATIENT
  Age: 37 Year
  Sex: Female

DRUGS (49)
  1. DUPIXENT [Suspect]
     Active Substance: DUPILUMAB
     Indication: Dermatitis atopic
     Dosage: 300 MG, QOW
     Route: 058
     Dates: start: 20191025, end: 202010
  2. LOXOPROFEN [Concomitant]
     Active Substance: LOXOPROFEN
     Indication: Product used for unknown indication
     Dosage: 1 DF
     Route: 048
     Dates: start: 20200114
  3. LOXOPROFEN [Concomitant]
     Active Substance: LOXOPROFEN
     Dosage: 1 DF
     Route: 048
     Dates: start: 20200316
  4. LOXOPROFEN [Concomitant]
     Active Substance: LOXOPROFEN
     Dosage: 1 DF
     Route: 048
     Dates: start: 20200605
  5. LOXOPROFEN [Concomitant]
     Active Substance: LOXOPROFEN
     Dosage: 1 DF, TID (AFTER EACH MEAL)
     Route: 048
     Dates: start: 20200615
  6. LOXOPROFEN [Concomitant]
     Active Substance: LOXOPROFEN
     Dosage: 1 DF, TID (AFTER EACH MEAL)
     Route: 048
     Dates: start: 20200619
  7. LOXOPROFEN [Concomitant]
     Active Substance: LOXOPROFEN
     Dosage: 1 DF
     Route: 048
     Dates: start: 20200630
  8. LOXOPROFEN [Concomitant]
     Active Substance: LOXOPROFEN
     Dosage: 1 DF, TID (AFTER EACH MEAL)
     Route: 048
     Dates: start: 20201116
  9. LOXOPROFEN [Concomitant]
     Active Substance: LOXOPROFEN
     Dosage: 1 DF, TID (AFTER EACH MEAL)
     Route: 048
     Dates: start: 20201118
  10. METFORMIN HYDROCHLORIDE [Concomitant]
     Active Substance: METFORMIN HYDROCHLORIDE
     Indication: Product used for unknown indication
     Dosage: 1 DF, QD (AFTER BREAKFAST)
     Route: 048
     Dates: start: 20200207
  11. METFORMIN HYDROCHLORIDE [Concomitant]
     Active Substance: METFORMIN HYDROCHLORIDE
     Dosage: 1 DF, QD (AFTER BREAKFAST)
     Route: 048
     Dates: start: 20200402
  12. METFORMIN HYDROCHLORIDE [Concomitant]
     Active Substance: METFORMIN HYDROCHLORIDE
     Dosage: 1 DF, QD (AFTER BREAKFAST)
     Route: 048
     Dates: start: 20200625
  13. METFORMIN HYDROCHLORIDE [Concomitant]
     Active Substance: METFORMIN HYDROCHLORIDE
     Dosage: 1 DF, QD (AFTER BREAKFAST)
     Route: 048
     Dates: start: 20200820
  14. METFORMIN HYDROCHLORIDE [Concomitant]
     Active Substance: METFORMIN HYDROCHLORIDE
     Dosage: 1 DF, QD (AFTER BREAKFAST)
     Route: 048
     Dates: start: 20201112
  15. URSO 1A PHARMA [Concomitant]
     Indication: Product used for unknown indication
     Dosage: 1 DF, TID (AFTER BREAKFAST, LUNCH, AND SUPPER)
     Route: 048
     Dates: start: 20200207
  16. URSO 1A PHARMA [Concomitant]
     Dosage: 1 DF, TID (AFTER BREAKFAST, LUNCH, AND SUPPER)
     Route: 048
     Dates: start: 20200402
  17. URSO 1A PHARMA [Concomitant]
     Dosage: 1 DF, TID (AFTER BREAKFAST, LUNCH, AND SUPPER)
     Route: 048
     Dates: start: 20200625
  18. URSO 1A PHARMA [Concomitant]
     Dosage: 1 DF, TID (AFTER BREAKFAST, LUNCH, AND SUPPER)
     Route: 048
     Dates: start: 20200820
  19. URSO 1A PHARMA [Concomitant]
     Dosage: 1 DF, TID (AFTER BREAKFAST, LUNCH, AND SUPPER)
     Route: 048
     Dates: start: 20201112
  20. CINAL [ASCORBIC ACID;CALCIUM PANTOTHENATE] [Concomitant]
     Indication: Product used for unknown indication
     Dosage: 1 DF, BID (AFTER BREAKFAST AND DINNER)
     Route: 048
     Dates: start: 20200214
  21. CINAL [ASCORBIC ACID;CALCIUM PANTOTHENATE] [Concomitant]
     Dosage: 1 DF, BID (AFTER BREAKFAST AND DINNER)
     Route: 048
     Dates: start: 20200407
  22. CINAL [ASCORBIC ACID;CALCIUM PANTOTHENATE] [Concomitant]
     Dosage: 1 DF, TID (AFTER EACH MEAL)
     Route: 048
     Dates: start: 20200605
  23. CINAL [ASCORBIC ACID;CALCIUM PANTOTHENATE] [Concomitant]
     Dosage: 1 DF, TID (AFTER EACH MEAL)
     Route: 048
     Dates: start: 20200630
  24. CINAL [ASCORBIC ACID;CALCIUM PANTOTHENATE] [Concomitant]
     Dosage: 1 DF, TID (AFTER EACH MEAL)
     Route: 048
     Dates: start: 20200807
  25. CINAL [ASCORBIC ACID;CALCIUM PANTOTHENATE] [Concomitant]
     Dosage: 1 DF, TID (AFTER EACH MEAL)
     Route: 048
     Dates: start: 20201003
  26. FLOMOX [CEFCAPENE PIVOXIL HYDROCHLORIDE HYDRATE] [Concomitant]
     Indication: Product used for unknown indication
     Dosage: 1 DF, TID (AFTER EACH MEAL)
     Route: 048
     Dates: start: 20200615
  27. FLOMOX [CEFCAPENE PIVOXIL HYDROCHLORIDE HYDRATE] [Concomitant]
     Dosage: 1 DF, TID (AFTER EACH MEAL)
     Route: 048
     Dates: start: 20201003
  28. REBAMIPIDE [Concomitant]
     Active Substance: REBAMIPIDE
     Indication: Product used for unknown indication
     Dosage: 1 DF, TID (AFTER EACH MEAL)
     Route: 048
     Dates: start: 20200615
  29. REBAMIPIDE [Concomitant]
     Active Substance: REBAMIPIDE
     Dosage: 1 DF, TID (AFTER EACH MEAL)
     Route: 048
     Dates: start: 20200619
  30. REBAMIPIDE [Concomitant]
     Active Substance: REBAMIPIDE
     Dosage: 1 DF, TID (AFTER EACH MEAL)
     Route: 048
     Dates: start: 20201118
  31. LEXAPRO [Concomitant]
     Active Substance: ESCITALOPRAM OXALATE
     Indication: Product used for unknown indication
     Dosage: 1 DF, QD (BEFORE SLEEP)
     Route: 048
     Dates: start: 20200803
  32. LEXAPRO [Concomitant]
     Active Substance: ESCITALOPRAM OXALATE
     Dosage: 1 DF, QD (BEFORE SLEEP)
     Route: 048
     Dates: start: 20200824
  33. LEXAPRO [Concomitant]
     Active Substance: ESCITALOPRAM OXALATE
     Dosage: 1 DF, QD (AFTER DINNER)
     Route: 048
     Dates: start: 20201019
  34. LEXAPRO [Concomitant]
     Active Substance: ESCITALOPRAM OXALATE
     Dosage: 1 DF, 1X (BEFORE SLEEP)
     Route: 048
     Dates: start: 20201120
  35. LEXAPRO [Concomitant]
     Active Substance: ESCITALOPRAM OXALATE
     Dosage: 1 DF, QD (AFTER DINNER)
     Route: 048
     Dates: start: 20201125
  36. LEXAPRO [Concomitant]
     Active Substance: ESCITALOPRAM OXALATE
     Dosage: 1 DF, QD (AFTER DINNER)
     Route: 048
     Dates: start: 20201130
  37. ADENOSINE TRIPHOSPHATE DISODIUM [Concomitant]
     Active Substance: ADENOSINE TRIPHOSPHATE DISODIUM
     Indication: Product used for unknown indication
     Dosage: 1 G, TID (AFTER EACH MEAL)
     Route: 048
     Dates: start: 20201118
  38. METHYLCOBALAMIN [Concomitant]
     Active Substance: METHYLCOBALAMIN
     Indication: Product used for unknown indication
     Dosage: 1 DF, TID (AFTER EACH MEAL)
     Route: 048
     Dates: start: 20201118
  39. VALACYCLOVIR HYDROCHLORIDE [Concomitant]
     Active Substance: VALACYCLOVIR HYDROCHLORIDE
     Indication: Product used for unknown indication
     Dosage: 2 DF, TID (AFTER EACH MEAL)
     Route: 048
     Dates: start: 20201118
  40. PREDONINE [Concomitant]
     Active Substance: PREDNISOLONE
     Indication: Product used for unknown indication
     Dosage: 3 DF, BID (AFTER BREAKFAST AND LUNCH)
     Route: 048
     Dates: start: 20201119
  41. PREDONINE [Concomitant]
     Active Substance: PREDNISOLONE
     Dosage: 2 DF, BID (AFTER BREAKFAST AND LUNCH)
     Route: 048
  42. PREDONINE [Concomitant]
     Active Substance: PREDNISOLONE
     Dosage: 1 DF, BID (AFTER BREAKFAST AND LUNCH)
     Route: 048
  43. HYALURONATE SODIUM [Concomitant]
     Active Substance: HYALURONATE SODIUM
     Indication: Product used for unknown indication
     Dosage: UNK UNK, PRN
     Route: 047
     Dates: start: 20201118
  44. CEFDITOREN PIVOXIL [Concomitant]
     Active Substance: CEFDITOREN PIVOXIL
     Indication: Product used for unknown indication
     Dosage: 1 DF, TID (AFTER EACH MEAL)
     Route: 048
     Dates: start: 20201116
  45. VICTOZA [Concomitant]
     Active Substance: LIRAGLUTIDE
     Indication: Product used for unknown indication
     Dosage: 0.9 MG, QD (BEFORE BREAKFAST)
     Route: 058
     Dates: start: 20200207
  46. VICTOZA [Concomitant]
     Active Substance: LIRAGLUTIDE
     Dosage: 0.9 MG, QD (BEFORE BREAKFAST)
     Route: 058
     Dates: start: 20200402
  47. VICTOZA [Concomitant]
     Active Substance: LIRAGLUTIDE
     Dosage: 1.2 MG, QD (BEFORE BREAKFAST)
     Route: 058
     Dates: start: 20200625
  48. VICTOZA [Concomitant]
     Active Substance: LIRAGLUTIDE
     Dosage: 1.2 MG, QD (BEFORE BREAKFAST)
     Route: 058
     Dates: start: 20200820
  49. VICTOZA [Concomitant]
     Active Substance: LIRAGLUTIDE
     Dosage: 0.9 MG, QD (BEFORE BREAKFAST)
     Route: 058
     Dates: start: 20201112

REACTIONS (4)
  - Facial paralysis [Recovered/Resolved]
  - Intraocular pressure increased [Recovered/Resolved]
  - Conjunctival hyperaemia [Recovered/Resolved]
  - Eye pruritus [Recovered/Resolved]

NARRATIVE: CASE EVENT DATE: 20191201
